FAERS Safety Report 6826015-1 (Version None)
Quarter: 2010Q3

REPORT INFORMATION
  Report Type: 
  Country: None (occurrence: None)
  Receive Date: 20100709
  Receipt Date: 20100702
  Transmission Date: 20110219
  Serious: Yes (Hospitalization, Other)
  Sender: FDA-Public Use
  Company Number: PT-ASTRAZENECA-2010SE29843

PATIENT
  Age: 7611 Day
  Sex: Male

DRUGS (4)
  1. SEROQUEL [Suspect]
     Indication: MENTAL RETARDATION
     Route: 048
     Dates: start: 20080410, end: 20100531
  2. DIPLEXIL R [Suspect]
     Indication: MENTAL RETARDATION
     Route: 048
     Dates: start: 20071121, end: 20100531
  3. PAROXETINE HCL [Concomitant]
     Indication: CONVULSIVE THRESHOLD LOWERED
     Route: 048
     Dates: start: 20071121
  4. PROPRANOLOL [Concomitant]
     Indication: TREMOR
     Route: 048
     Dates: start: 20100429

REACTIONS (1)
  - PANCREATITIS [None]
